FAERS Safety Report 4421494-1 (Version None)
Quarter: 2004Q3

REPORT INFORMATION
  Report Type: 
  Country: None (occurrence: None)
  Receive Date: 20040709
  Receipt Date: 20031001
  Transmission Date: 20050211
  Serious: Yes (Other)
  Sender: FDA-Public Use
  Company Number: US-SHR-03-015279

PATIENT
  Age: 49 Year
  Sex: Female
  Weight: 81.6 kg

DRUGS (1)
  1. ULTRAVIST 300 [Suspect]
     Indication: COMPUTERISED TOMOGRAM
     Dosage: 125  ML, 1 DOSE, INTRAVENOUS
     Route: 042
     Dates: start: 20030918, end: 20030918

REACTIONS (3)
  - DEPRESSED LEVEL OF CONSCIOUSNESS [None]
  - DYSPNOEA [None]
  - WHEEZING [None]
